FAERS Safety Report 7439878-6 (Version None)
Quarter: 2011Q2

REPORT INFORMATION
  Report Type: 
  Country: None (occurrence: None)
  Receive Date: 20110427
  Receipt Date: 20110421
  Transmission Date: 20111010
  Serious: Yes (Hospitalization)
  Sender: FDA-Public Use
  Company Number: FR-SANOFI-AVENTIS-2011SA024892

PATIENT
  Age: 64 Year
  Sex: Female

DRUGS (5)
  1. INEGY [Concomitant]
  2. TENORMIN [Concomitant]
  3. FOSAMAX [Concomitant]
  4. PLAVIX [Suspect]
     Route: 048
     Dates: end: 20110117
  5. ATACAND [Concomitant]

REACTIONS (3)
  - MELAENA [None]
  - ANAEMIA [None]
  - ANGINA PECTORIS [None]
